FAERS Safety Report 25706159 (Version 1)
Quarter: 2025Q3

REPORT INFORMATION
  Report Type: Spontaneous
  Country: US (occurrence: US)
  Receive Date: 20250820
  Receipt Date: 20250820
  Transmission Date: 20251020
  Serious: Yes (Disabling, Other)
  Sender: NOVO NORDISK
  Company Number: US-NOVOPROD-1500482

PATIENT
  Sex: Male

DRUGS (1)
  1. NOVOLOG MIX 70/30 [Suspect]
     Active Substance: INSULIN ASPART
     Indication: Diabetes mellitus
     Dosage: 80 IU, QD
     Route: 058
     Dates: start: 2005

REACTIONS (3)
  - Cerebrovascular accident [Not Recovered/Not Resolved]
  - Immobile [Not Recovered/Not Resolved]
  - Product storage error [Not Recovered/Not Resolved]
